FAERS Safety Report 14311386 (Version 1)
Quarter: 2017Q4

REPORT INFORMATION
  Report Type: Spontaneous
  Country: US (occurrence: US)
  Receive Date: 20171221
  Receipt Date: 20171221
  Transmission Date: 20180321
  Serious: No
  Sender: FDA-Public Use
  Company Number: US-NOVEN PHARMACEUTICALS, INC.-US2017000912

PATIENT

DRUGS (3)
  1. MINIVELLE [Suspect]
     Active Substance: ESTRADIOL
     Dosage: 0.05 MG, UNK
     Route: 062
  2. MINIVELLE [Suspect]
     Active Substance: ESTRADIOL
     Indication: ANXIETY
     Dosage: 0.05 MG, UNKNOWN
     Route: 062
  3. MINIVELLE [Suspect]
     Active Substance: ESTRADIOL
     Indication: HORMONE REPLACEMENT THERAPY
     Dosage: 0.0375 MG, UNKNOWN
     Route: 062

REACTIONS (11)
  - Off label use [Unknown]
  - Back pain [Recovered/Resolved]
  - Drug ineffective [Unknown]
  - Gastrooesophageal reflux disease [Unknown]
  - Migraine [Recovering/Resolving]
  - Feeling jittery [Recovered/Resolved]
  - Nausea [Recovered/Resolved]
  - Therapy cessation [Not Recovered/Not Resolved]
  - Anxiety [Recovered/Resolved]
  - Headache [Recovering/Resolving]
  - Chest pain [Recovered/Resolved]
